FAERS Safety Report 25003660 (Version 1)
Quarter: 2025Q1

REPORT INFORMATION
  Report Type: Spontaneous
  Country: US (occurrence: None)
  Receive Date: 20250221
  Receipt Date: 20250221
  Transmission Date: 20250408
  Serious: Yes (Hospitalization)
  Sender: FDA-CTU
  Company Number: None

PATIENT
  Age: 54 Year
  Sex: Female

DRUGS (13)
  1. MYCOPHENOLIC ACID [Suspect]
     Active Substance: MYCOPHENOLIC ACID
     Indication: Renal transplant
     Dosage: 540 MG TWICE A DAY ORAL ?
     Route: 048
     Dates: start: 20240706
  2. ASPIRIN [Concomitant]
     Active Substance: ASPIRIN
     Dates: start: 20240706, end: 20240805
  3. Atovaquone 750mg/ml [Concomitant]
     Dates: start: 20240924, end: 20241023
  4. Calcitriol 0.25mcg capsules [Concomitant]
     Dates: start: 20240924, end: 20241023
  5. CARVEDILOL [Concomitant]
     Active Substance: CARVEDILOL
     Dates: start: 20240706, end: 20240805
  6. DRONABINOL [Concomitant]
     Active Substance: DRONABINOL
     Dates: start: 20240924, end: 20241023
  7. FOLIC ACID [Concomitant]
     Active Substance: FOLIC ACID
     Dates: start: 20240706
  8. PENICILLIN V POTASSIUM [Concomitant]
     Active Substance: PENICILLIN V POTASSIUM
     Dates: start: 20240706, end: 20240930
  9. PREDNISONE [Concomitant]
     Active Substance: PREDNISONE
     Dates: start: 20240706
  10. Bactrim 400-80 [Concomitant]
     Dates: start: 20240706, end: 20240829
  11. TAMSULOSIN [Concomitant]
     Active Substance: TAMSULOSIN
     Dates: start: 20240924, end: 20241023
  12. VALGANCICLOVIR HYDROCHLORIDE [Concomitant]
     Active Substance: VALGANCICLOVIR HYDROCHLORIDE
     Dates: start: 20240706, end: 20240930
  13. VITAMIN B12 [Concomitant]
     Active Substance: CYANOCOBALAMIN
     Dates: start: 20240706

REACTIONS (1)
  - Infection [None]

NARRATIVE: CASE EVENT DATE: 20250117
